FAERS Safety Report 6134496-4 (Version None)
Quarter: 2009Q1

REPORT INFORMATION
  Report Type: 
  Country: None (occurrence: None)
  Receive Date: 20090327
  Receipt Date: 20090320
  Transmission Date: 20090719
  Serious: Yes (Hospitalization)
  Sender: FDA-Public Use
  Company Number: US-JNJFOC-20080500243

PATIENT
  Sex: Female
  Weight: 67.8 kg

DRUGS (2)
  1. ORTHO EVRA [Suspect]
     Indication: CONTRACEPTION
     Route: 062
  2. CLARITIN 24 [Concomitant]
     Indication: MULTIPLE ALLERGIES

REACTIONS (2)
  - CEREBROVASCULAR ACCIDENT [None]
  - MYOCLONIC EPILEPSY [None]
